FAERS Safety Report 12577812 (Version 1)
Quarter: 2016Q3

REPORT INFORMATION
  Report Type: Report from Study
  Country: BE (occurrence: BE)
  Receive Date: 20160721
  Receipt Date: 20160721
  Transmission Date: 20161109
  Serious: Yes (Hospitalization, Other)
  Sender: FDA-Public Use
  Company Number: BE-AMGEN-BELNI2016073474

PATIENT
  Age: 72 Year
  Sex: Male

DRUGS (19)
  1. PYRIDOXINE [Concomitant]
     Active Substance: PYRIDOXINE
     Dosage: 250 MG, UNK
     Dates: start: 20160708
  2. ZOVIRAX [Concomitant]
     Active Substance: ACYCLOVIR
     Dosage: 800 MG, UNK
     Dates: start: 20160708
  3. ACTAPULGITE [Concomitant]
     Dosage: 3 G, TID SACHET
     Route: 048
     Dates: start: 20160708
  4. ASAFLOW [Concomitant]
     Active Substance: ASPIRIN
     Dosage: 80 MG, QD
     Route: 048
     Dates: start: 20160708
  5. MYAMBUTOL [Concomitant]
     Active Substance: ETHAMBUTOL HYDROCHLORIDE
     Dosage: 400 MG, UNK
     Dates: start: 20160708
  6. PANTOMED [Concomitant]
     Active Substance: DEXPANTHENOL
     Dosage: 20 MG, UNK
     Dates: start: 20160708
  7. ISO BETADINE [Concomitant]
     Dosage: 200 ML, UNK
     Dates: start: 20160708
  8. DAFALGAN [Concomitant]
     Active Substance: ACETAMINOPHEN
     Dosage: 1 G, UNK
     Dates: start: 20160708
  9. NOBITEN [Concomitant]
     Active Substance: NEBIVOLOL
     Dosage: 5 MG, UNK
     Dates: start: 20160708
  10. CALCIUM SZ FORTE [Concomitant]
     Dosage: 500 MG, SACHET
     Dates: start: 20160708
  11. CLEXANE [Concomitant]
     Active Substance: ENOXAPARIN SODIUM
     Dosage: 20 MG, UNK
     Dates: start: 20160708
  12. CARFILZOMIB [Suspect]
     Active Substance: CARFILZOMIB
     Dosage: 108 MG, UNK
     Route: 042
  13. TEBRAZID [Concomitant]
     Active Substance: PYRAZINAMIDE
     Dosage: 500 MG, UNK
     Dates: start: 20160708
  14. CARFILZOMIB [Suspect]
     Active Substance: CARFILZOMIB
     Indication: PLASMA CELL MYELOMA
     Dosage: 108.08 UNK, UNK
     Route: 042
     Dates: start: 20160425
  15. KALIUM RETARD [Concomitant]
     Dosage: 600 MG, UNK
     Dates: start: 20160708
  16. NICOTIBINE [Concomitant]
     Active Substance: ISONIAZID
     Dosage: 300 MG, UNK
     Dates: start: 20160708
  17. RIFADINE [Concomitant]
     Active Substance: RIFAMPIN
     Dosage: 300 MG, UNK
     Dates: start: 20160708
  18. ALLOPURINOL. [Concomitant]
     Active Substance: ALLOPURINOL
     Dosage: 300 MG, QD
     Route: 048
     Dates: start: 20160708
  19. BURINEX [Concomitant]
     Active Substance: BUMETANIDE
     Dosage: 1 MG, UNK
     Dates: start: 20160708

REACTIONS (2)
  - Tuberculosis [Not Recovered/Not Resolved]
  - Pneumonia [Not Recovered/Not Resolved]

NARRATIVE: CASE EVENT DATE: 20160606
